FAERS Safety Report 5787182-4 (Version None)
Quarter: 2008Q2

REPORT INFORMATION
  Report Type: 
  Country: None (occurrence: None)
  Receive Date: 20080625
  Receipt Date: 20070829
  Transmission Date: 20081010
  Serious: No
  Sender: FDA-Public Use
  Company Number: US-ASTRAZENECA-2007UW20569

PATIENT
  Age: 85 Year
  Sex: Female

DRUGS (3)
  1. PULMICORT FLEXHLAER [Suspect]
     Indication: HYPERSENSITIVITY
     Dosage: 180 MCG
     Route: 055
  2. NORVASC [Concomitant]
  3. LISINOPRIL [Concomitant]

REACTIONS (2)
  - RHINORRHOEA [None]
  - SNEEZING [None]
